FAERS Safety Report 8863020 (Version 1)
Quarter: 2012Q4

REPORT INFORMATION
  Report Type: 
  Country: US (occurrence: US)
  Receive Date: 20121026
  Receipt Date: 20121026
  Transmission Date: 20130627
  Serious: No
  Sender: FDA-Public Use
  Company Number: US-ALLERGAN-1116666US

PATIENT
  Age: 87 Year
  Sex: Female

DRUGS (5)
  1. ALPHAGAN P [Suspect]
     Indication: DRY EYE
     Dosage: 2 Gtt, bid
     Route: 047
     Dates: start: 201106
  2. ALPHAGAN P [Suspect]
     Indication: INTRAOCULAR PRESSURE HIGH
  3. TRAVATAN [Concomitant]
     Indication: GLAUCOMA
     Dosage: 2 Gtt, qhs
     Route: 047
  4. COREG [Concomitant]
     Indication: HEART DISORDER
     Dosage: one qhs UNK
     Route: 048
  5. ASA [Concomitant]
     Indication: DRUG USE FOR UNKNOWN INDICATION
     Dosage: UNK

REACTIONS (5)
  - Fatigue [Unknown]
  - Hypotension [Unknown]
  - Vision blurred [Unknown]
  - Dry mouth [Not Recovered/Not Resolved]
  - Asthenia [Unknown]
